FAERS Safety Report 21350087 (Version 1)
Quarter: 2022Q3

REPORT INFORMATION
  Report Type: Spontaneous
  Country: US (occurrence: US)
  Receive Date: 20220919
  Receipt Date: 20220919
  Transmission Date: 20221026
  Serious: No
  Sender: FDA-Public Use
  Company Number: US-SAREPTA THERAPEUTICS INC.-SRP2022-002317

PATIENT
  Age: 11 Year
  Sex: Male
  Weight: 43.084 kg

DRUGS (2)
  1. VYONDYS 53 [Suspect]
     Active Substance: GOLODIRSEN
     Indication: Muscular dystrophy
     Dosage: 1250 MILLIGRAM, WEEKLY
     Route: 042
     Dates: start: 2021, end: 20220615
  2. VYONDYS 53 [Suspect]
     Active Substance: GOLODIRSEN
     Dosage: 1250 MILLIGRAM, WEEKLY
     Route: 042
     Dates: start: 20220628

REACTIONS (2)
  - Intentional dose omission [Unknown]
  - No adverse event [Unknown]

NARRATIVE: CASE EVENT DATE: 20220623
